FAERS Safety Report 4286138-0 (Version None)
Quarter: 2004Q1

REPORT INFORMATION
  Report Type: 
  Country: None (occurrence: None)
  Receive Date: 20040205
  Receipt Date: 20040126
  Transmission Date: 20041129
  Serious: Yes (Hospitalization)
  Sender: FDA-Public Use
  Company Number: FR-BRISTOL-MYERS SQUIBB COMPANY-12486593

PATIENT
  Age: 63 Year
  Sex: Male
  Weight: 48 kg

DRUGS (7)
  1. BRISTOPEN INJ 1 G [Suspect]
     Route: 042
     Dates: start: 20031121, end: 20031124
  2. FUCIDINE CAP [Suspect]
     Dates: start: 20031121
  3. OFLOCET [Concomitant]
     Dates: start: 20031026, end: 20031205
  4. DALACINE [Concomitant]
     Dates: start: 20031120, end: 20031121
  5. RIFADIN [Concomitant]
     Dates: start: 20031109, end: 20031110
  6. FLAGYL [Concomitant]
     Dates: start: 20031108, end: 20031126
  7. FUROSEMIDE [Concomitant]

REACTIONS (8)
  - ANURIA [None]
  - NEPHRITIS INTERSTITIAL [None]
  - PORPHYRIA [None]
  - PORPHYRIA NON-ACUTE [None]
  - RASH [None]
  - RASH MACULO-PAPULAR [None]
  - RENAL FAILURE [None]
  - URTICARIA [None]
